FAERS Safety Report 24226385 (Version 2)
Quarter: 2024Q3

REPORT INFORMATION
  Report Type: Spontaneous
  Country: JP (occurrence: JP)
  Receive Date: 20240820
  Receipt Date: 20240923
  Transmission Date: 20241016
  Serious: Yes (Hospitalization, Other)
  Sender: Haleon PLC
  Company Number: JP-HALEON-2192228

PATIENT
  Age: 50 Year
  Sex: Male
  Weight: 78.8 kg

DRUGS (3)
  1. ORLISTAT [Suspect]
     Active Substance: ORLISTAT
     Indication: Hepatic steatosis
     Dosage: TIME INTERVAL: AS NECESSARY: DOSE FORM: POR
     Route: 048
     Dates: start: 20240409, end: 20240504
  2. COLCHICINE [Concomitant]
     Active Substance: COLCHICINE
     Indication: Prophylaxis
     Dosage: TIME INTERVAL: AS NECESSARY: SPECIFICATIONS: 0.5MG
     Route: 048
  3. VONOPRAZAN FUMARATE [Concomitant]
     Active Substance: VONOPRAZAN FUMARATE
     Dosage: SPECIFICATIONS: 20MG 1T1X
     Route: 065

REACTIONS (7)
  - Hepatitis acute [Recovered/Resolved]
  - Pyrexia [Not Recovered/Not Resolved]
  - Abdominal pain [Not Recovered/Not Resolved]
  - C-reactive protein increased [Not Recovered/Not Resolved]
  - Hepatic enzyme increased [Recovering/Resolving]
  - Tendon pain [Not Recovered/Not Resolved]
  - Perihepatitis [Not Recovered/Not Resolved]

NARRATIVE: CASE EVENT DATE: 20240504
